FAERS Safety Report 9826399 (Version 1)
Quarter: 2014Q1

REPORT INFORMATION
  Report Type: Spontaneous
  Country: US (occurrence: US)
  Receive Date: 20140117
  Receipt Date: 20140117
  Transmission Date: 20141002
  Serious: No
  Sender: FDA-Public Use
  Company Number: US-BIOGENIDEC-2014BI001329

PATIENT
  Sex: Female

DRUGS (5)
  1. TECFIDERA [Suspect]
     Indication: MULTIPLE SCLEROSIS
     Route: 048
     Dates: start: 201301
  2. AMBIEN [Concomitant]
  3. WELLBUTRIN SR [Concomitant]
  4. ASPIRIN [Concomitant]
  5. SEASONIQUE [Concomitant]

REACTIONS (4)
  - Pain [Unknown]
  - Nasopharyngitis [Unknown]
  - Malaise [Unknown]
  - Fatigue [Unknown]
